FAERS Safety Report 9706382 (Version 2)
Quarter: 2014Q1

REPORT INFORMATION
  Report Type: Spontaneous
  Country: US (occurrence: US)
  Receive Date: 20131125
  Receipt Date: 20140115
  Transmission Date: 20141002
  Serious: Yes (Hospitalization)
  Sender: FDA-Public Use
  Company Number: US-BIOGENIDEC-2013BI113510

PATIENT
  Age: 42 Year
  Sex: Female

DRUGS (2)
  1. TYSABRI [Suspect]
     Indication: CROHN^S DISEASE
     Route: 042
     Dates: start: 20121228, end: 20130722
  2. REMICADE [Concomitant]

REACTIONS (3)
  - Crohn^s disease [Unknown]
  - Enterocutaneous fistula [Unknown]
  - Drug ineffective [Unknown]
